FAERS Safety Report 7558279-3 (Version None)
Quarter: 2011Q2

REPORT INFORMATION
  Report Type: 
  Country: None (occurrence: None)
  Receive Date: 20110620
  Receipt Date: 20110607
  Transmission Date: 20111010
  Serious: Yes (Hospitalization)
  Sender: FDA-Public Use
  Company Number: GB-PURDUE-USA-2011-0069916

PATIENT
  Age: 64 Year
  Sex: Female

DRUGS (1)
  1. TRAMADOL HCL [Suspect]
     Indication: PAIN
     Dosage: 100 MG, UNK
     Route: 048
     Dates: start: 20110511, end: 20110513

REACTIONS (1)
  - VOMITING PROJECTILE [None]
